FAERS Safety Report 9695808 (Version 3)
Quarter: 2013Q4

REPORT INFORMATION
  Report Type: Spontaneous
  Country: DE (occurrence: DE)
  Receive Date: 20131119
  Receipt Date: 20131216
  Transmission Date: 20140711
  Serious: Yes (Death)
  Sender: FDA-Public Use
  Company Number: DE-JNJFOC-20131109578

PATIENT
  Age: 75 Year
  Sex: Male

DRUGS (8)
  1. XARELTO [Suspect]
     Indication: CEREBROVASCULAR ACCIDENT PROPHYLAXIS
     Route: 048
     Dates: start: 20120124
  2. XARELTO [Suspect]
     Indication: ATRIAL FIBRILLATION
     Route: 048
     Dates: start: 20120124
  3. INEGY [Concomitant]
     Indication: PRODUCT USED FOR UNKNOWN INDICATION
     Route: 065
  4. CARVEDILOL [Concomitant]
     Route: 065
  5. MOXONIDIN [Concomitant]
     Route: 065
  6. BIPRETERAX [Concomitant]
     Route: 065
  7. L-THYROXIN [Concomitant]
     Route: 065
  8. SEREVENT DISKUS [Concomitant]
     Route: 065

REACTIONS (2)
  - Hypertensive crisis [Fatal]
  - Thalamus haemorrhage [Fatal]
